FAERS Safety Report 7004211-0 (Version None)
Quarter: 2010Q3

REPORT INFORMATION
  Report Type: 
  Country: None (occurrence: None)
  Receive Date: 20100920
  Receipt Date: 20100210
  Transmission Date: 20110219
  Serious: No
  Sender: FDA-Public Use
  Company Number: US-WYE-H13596910

PATIENT
  Sex: Female
  Weight: 61.29 kg

DRUGS (3)
  1. PRISTIQ [Suspect]
     Indication: ANXIETY
     Route: 048
     Dates: start: 20091001, end: 20100107
  2. PRISTIQ [Suspect]
     Indication: PREMENSTRUAL SYNDROME
     Dosage: 1/2 TABLET DAILY
     Route: 048
     Dates: start: 20100108, end: 20100121
  3. PRISTIQ [Suspect]
     Dosage: 1/2 TABLET EVERY OTHER DAY
     Route: 048
     Dates: start: 20100122, end: 20100205

REACTIONS (6)
  - ABNORMAL DREAMS [None]
  - DIZZINESS [None]
  - DRUG WITHDRAWAL SYNDROME [None]
  - INSOMNIA [None]
  - TINNITUS [None]
  - WEIGHT INCREASED [None]
